FAERS Safety Report 13159599 (Version 5)
Quarter: 2017Q3

REPORT INFORMATION
  Report Type: Spontaneous
  Country: KR (occurrence: KR)
  Receive Date: 20170127
  Receipt Date: 20170825
  Transmission Date: 20171127
  Serious: Yes (Hospitalization, Other)
  Sender: FDA-Public Use
  Company Number: KR-009507513-1701KOR011028

PATIENT
  Age: 48 Year
  Sex: Male
  Weight: 72.4 kg

DRUGS (32)
  1. REALDIRON [Concomitant]
     Dosage: 1.2 ML, QD (3 TIMES A WEEK, SELF INJECTION), CYCLE 3
     Route: 058
     Dates: start: 20160621, end: 20160714
  2. BANAN [Concomitant]
     Active Substance: CEFPODOXIME PROXETIL
     Indication: PROPHYLAXIS
     Dosage: 1 TABLET (100 MG), BID
     Route: 048
     Dates: start: 20160506, end: 20160511
  3. STOGAR [Concomitant]
     Active Substance: LAFUTIDINE
     Indication: PROPHYLAXIS AGAINST GASTROINTESTINAL ULCER
     Dosage: 1 TABLET (10 MG), BID
     Route: 048
     Dates: start: 20160506, end: 20160511
  4. TYLENOL [Concomitant]
     Active Substance: ACETAMINOPHEN
     Dosage: 1 TABLET (650 MG), BID
     Route: 048
     Dates: start: 20160526, end: 20160604
  5. DEXA S [Concomitant]
     Indication: PREMEDICATION
     Dosage: 8 MG, ONCE; CONCENTRATION: 5MG/ML
     Route: 042
     Dates: start: 20160517, end: 20160517
  6. ALOXI [Concomitant]
     Active Substance: PALONOSETRON HYDROCHLORIDE
     Dosage: 0.25 MG, ONCE
     Route: 042
     Dates: start: 20160801, end: 20160801
  7. PENIRAMIN [Concomitant]
     Dosage: 1 TABLET (2MG), BID
     Route: 048
     Dates: start: 20160718
  8. MACPERAN [Concomitant]
     Active Substance: METOCLOPRAMIDE HYDROCHLORIDE
     Indication: PROPHYLAXIS
     Dosage: 10 MG, FREQUENCY: 1
     Route: 042
     Dates: start: 20160517, end: 20160517
  9. EMEND (FOSAPREPITANT DIMEGLUMINE) [Suspect]
     Active Substance: FOSAPREPITANT DIMEGLUMINE
     Indication: PROPHYLAXIS OF NAUSEA AND VOMITING
     Dosage: 150 MG, ONCE
     Route: 042
     Dates: start: 20160425, end: 20160425
  10. BANAN [Concomitant]
     Active Substance: CEFPODOXIME PROXETIL
     Dosage: 1 TABLET (100 MG), BID
     Route: 048
     Dates: start: 20160719, end: 20160725
  11. ULTRACET [Concomitant]
     Active Substance: ACETAMINOPHEN\TRAMADOL HYDROCHLORIDE
     Indication: PAIN
     Dosage: 1 TABLET, TID
     Route: 048
     Dates: start: 201604, end: 20160508
  12. ALOXI [Concomitant]
     Active Substance: PALONOSETRON HYDROCHLORIDE
     Indication: PREMEDICATION
     Dosage: 0.25 MG, ONCE
     Route: 042
     Dates: start: 20160517, end: 20160517
  13. TYLENOL [Concomitant]
     Active Substance: ACETAMINOPHEN
     Dosage: 1 TABLET (650 MG), BID
     Route: 048
     Dates: start: 20160718
  14. EMEND (FOSAPREPITANT DIMEGLUMINE) [Suspect]
     Active Substance: FOSAPREPITANT DIMEGLUMINE
     Dosage: 150 MG, ONCE
     Route: 042
     Dates: start: 20160801, end: 20160801
  15. TRIDOL (TRAMADOL HYDROCHLORIDE) [Concomitant]
     Indication: PROPHYLAXIS
     Dosage: 1 AMP, ONCE; CONCENTRATION: 100MG/2ML
     Route: 042
     Dates: start: 20160517, end: 20160517
  16. TYLENOL [Concomitant]
     Active Substance: ACETAMINOPHEN
     Dosage: 1 TABLET (650 MG), BID
     Route: 048
     Dates: start: 20160623, end: 20160630
  17. LEGALON 140 [Concomitant]
     Indication: PROPHYLAXIS
     Dosage: 1 CAPSULE (140 MG), TID
     Route: 048
     Dates: start: 20160419, end: 20160604
  18. EMEND (FOSAPREPITANT DIMEGLUMINE) [Suspect]
     Active Substance: FOSAPREPITANT DIMEGLUMINE
     Dosage: 150 MG, ONCE
     Route: 042
     Dates: start: 20160517, end: 20160517
  19. EMEND (FOSAPREPITANT DIMEGLUMINE) [Suspect]
     Active Substance: FOSAPREPITANT DIMEGLUMINE
     Dosage: 150 MG, ONCE
     Route: 042
     Dates: start: 20160621, end: 20160621
  20. REALDIRON [Concomitant]
     Dosage: 1.2 ML, QD (3 TIMES A WEEK, SELF INJECTION), CYCLE 2
     Route: 058
     Dates: start: 20160517, end: 20160614
  21. DEXA S [Concomitant]
     Dosage: 8 MG, ONCE; CONCENTRATION: 5MG/ML
     Route: 042
     Dates: start: 20160621, end: 20160621
  22. ALOXI [Concomitant]
     Active Substance: PALONOSETRON HYDROCHLORIDE
     Dosage: 0.25 MG, ONCE
     Route: 042
     Dates: start: 20160621, end: 20160621
  23. ALBIS [Concomitant]
     Active Substance: BISMUTH SUBCITRATE\RANITIDINE HYDROCHLORIDE\SUCRALFATE
     Indication: PROPHYLAXIS AGAINST GASTROINTESTINAL ULCER
     Dosage: 1 TABLET, QD
     Route: 048
     Dates: start: 20160401
  24. STILNOX [Concomitant]
     Active Substance: ZOLPIDEM TARTRATE
     Indication: PROPHYLAXIS
     Dosage: 1 TABLET (6.25 MG), ONCE
     Route: 048
     Dates: start: 20160516, end: 20160516
  25. DEXA S [Concomitant]
     Dosage: 8 MG, ONCE; CONCENTRATION: 5MG/ML
     Route: 042
     Dates: start: 20160801, end: 20160801
  26. PENIRAMIN [Concomitant]
     Indication: PROPHYLAXIS
     Dosage: 1 TABLET (2MG), BID
     Route: 048
     Dates: start: 20160428, end: 20160510
  27. REALDIRON [Concomitant]
     Indication: SKIN CANCER
     Dosage: 1.2 ML, QD (3 TIMES A WEEK, SELF INJECTION), CYCLE 1
     Route: 058
     Dates: start: 20160425, end: 20160514
  28. REALDIRON [Concomitant]
     Dosage: 1.2 ML, QD (3 TIMES A WEEK, SELF INJECTION), CYCLE 4
     Route: 058
     Dates: start: 20160802
  29. PENIRAMIN [Concomitant]
     Dosage: 1 TABLET (2MG), BID
     Route: 048
     Dates: start: 20160526, end: 20160713
  30. TYLENOL [Concomitant]
     Active Substance: ACETAMINOPHEN
     Indication: PROPHYLAXIS
     Dosage: 1 TABLET (650 MG), BID
     Route: 048
     Dates: start: 20160428, end: 20160510
  31. TYLENOL [Concomitant]
     Active Substance: ACETAMINOPHEN
     Dosage: 1 TABLET (650 MG), BID
     Route: 048
     Dates: start: 20160621, end: 20160621
  32. URSA TABLETS [Concomitant]
     Indication: PROPHYLAXIS
     Dosage: 1 TABLET (100MG), TID
     Route: 048
     Dates: start: 20160419, end: 20160508

REACTIONS (5)
  - Confusional state [Recovered/Resolved]
  - Insomnia [Recovered/Resolved]
  - Gastric ulcer [Recovered/Resolved]
  - Gastric ulcer [Recovered/Resolved]
  - Hypertension [Recovered/Resolved]

NARRATIVE: CASE EVENT DATE: 20160517
